FAERS Safety Report 4359881-2 (Version None)
Quarter: 2004Q2

REPORT INFORMATION
  Report Type: 
  Country: None (occurrence: None)
  Receive Date: 20040517
  Receipt Date: 20040517
  Transmission Date: 20050107
  Serious: Yes (Hospitalization)
  Sender: FDA-Public Use
  Company Number: None

PATIENT
  Age: 58 Year
  Sex: Male
  Weight: 79.4 kg

DRUGS (8)
  1. ONTAK 18 MCG/KG/D [Suspect]
     Indication: NON-SMALL CELL LUNG CANCER
     Dosage: 1,287 MCG QD X 5 D
     Dates: start: 20040510, end: 20040513
  2. NEURONTIN [Concomitant]
  3. TRILEPTAL [Concomitant]
  4. METHADONE [Concomitant]
  5. OXYCODONE [Concomitant]
  6. PROVIGIL [Concomitant]
  7. ZANTAC [Concomitant]
  8. PROTEIN INFUSIONS [Concomitant]

REACTIONS (1)
  - PAIN EXACERBATED [None]
